FAERS Safety Report 9839099 (Version 3)
Quarter: 2014Q1

REPORT INFORMATION
  Report Type: Spontaneous
  Country: US (occurrence: US)
  Receive Date: 20140123
  Receipt Date: 20140330
  Transmission Date: 20141002
  Serious: Yes (Other)
  Sender: FDA-Public Use
  Company Number: US-TEVA-457925USA

PATIENT
  Age: 78 Year
  Sex: Male
  Weight: 86.26 kg

DRUGS (7)
  1. AZILECT [Suspect]
     Indication: COGNITIVE DISORDER
     Dates: start: 2011
  2. CARBIDOPA W/LEVODOPA [Concomitant]
     Dosage: 50/200 MG
     Route: 048
  3. PRAMIPEXOLE [Concomitant]
     Dosage: 4.5 MILLIGRAM DAILY;
     Route: 048
  4. XANAX [Concomitant]
     Indication: SLEEP DISORDER
     Dosage: 2 TABLETS QHS
     Route: 048
  5. AMLODIPINE [Concomitant]
     Indication: BLOOD PRESSURE INCREASED
     Dosage: 5 MILLIGRAM DAILY;
     Route: 048
  6. RED YEAST RICE [Concomitant]
     Indication: BLOOD CHOLESTEROL INCREASED
     Dosage: 1200 MILLIGRAM DAILY;
     Route: 048
  7. AREDS [Concomitant]
     Indication: VITAMIN SUPPLEMENTATION

REACTIONS (5)
  - Immobile [Not Recovered/Not Resolved]
  - Fall [Recovered/Resolved]
  - Hallucination [Not Recovered/Not Resolved]
  - Freezing phenomenon [Not Recovered/Not Resolved]
  - Adverse event [Unknown]
